FAERS Safety Report 17762517 (Version 1)
Quarter: 2020Q2

REPORT INFORMATION
  Report Type: Spontaneous
  Country: MY (occurrence: MY)
  Receive Date: 20200508
  Receipt Date: 20200508
  Transmission Date: 20200714
  Serious: Yes (Other)
  Sender: FDA-Public Use
  Company Number: NVSC2020MY125612

PATIENT
  Age: 37 Year
  Sex: Female

DRUGS (1)
  1. AMLODIPINE [Suspect]
     Active Substance: AMLODIPINE BESYLATE
     Indication: PRODUCT USED FOR UNKNOWN INDICATION
     Dosage: 300 MG
     Route: 065

REACTIONS (6)
  - Non-cardiogenic pulmonary oedema [Unknown]
  - Acute kidney injury [Unknown]
  - Dizziness [Unknown]
  - Overdose [Unknown]
  - Abdominal pain [Unknown]
  - Vomiting [Unknown]
